FAERS Safety Report 5255196-9 (Version None)
Quarter: 2007Q1

REPORT INFORMATION
  Report Type: 
  Country: None (occurrence: None)
  Receive Date: 20070227
  Receipt Date: 20070214
  Transmission Date: 20070707
  Serious: Yes (Hospitalization)
  Sender: FDA-Public Use
  Company Number: 012826

PATIENT
  Age: 57 Year
  Sex: Female

DRUGS (9)
  1. PRIALT [Suspect]
     Indication: PAIN
     Dosage: UG, ONCE/HOUR, INTRATHECAL
     Route: 037
     Dates: start: 20050101, end: 20070215
  2. CYMBALTA [Concomitant]
  3. NITROGLYCERIN STREULI (GLYCERYL TRINITRATE) [Concomitant]
  4. ASPIRIN [Concomitant]
  5. PREMARIN /00073001/ (ESTROGENS CONJUGATED) [Concomitant]
  6. WARFARIN SODIUM [Concomitant]
  7. L-LYSINE (LYSINE) [Concomitant]
  8. PROTONX /01263201/ (PANTOPRAZOLE) [Concomitant]
  9. SPIRONOLACTONE [Concomitant]

REACTIONS (6)
  - CEREBRAL HAEMORRHAGE [None]
  - COMA [None]
  - FALL [None]
  - HEAD INJURY [None]
  - JOINT INJURY [None]
  - REFUSAL OF TREATMENT BY RELATIVE [None]
